FAERS Safety Report 8516565-4 (Version None)
Quarter: 2012Q3

REPORT INFORMATION
  Report Type: 
  Country: None (occurrence: None)
  Receive Date: 20120718
  Receipt Date: 20120716
  Transmission Date: 20120928
  Serious: Yes (Other)
  Sender: FDA-Public Use
  Company Number: US-ELI_LILLY_AND_COMPANY-US201204009079

PATIENT
  Sex: Male

DRUGS (10)
  1. CLONIDINE [Concomitant]
  2. SIMVASTATIN [Concomitant]
  3. EFFIENT [Suspect]
     Indication: STENT PLACEMENT
     Dosage: 10 MG, UNKNOWN
     Route: 065
     Dates: start: 20110801, end: 20110901
  4. AMLODIPINE [Concomitant]
  5. CARVEDILOL [Concomitant]
  6. ZETIA [Concomitant]
  7. FISH OIL [Concomitant]
  8. ASPIRIN [Concomitant]
  9. ZEGERID [Concomitant]
  10. NIASPAN [Concomitant]

REACTIONS (1)
  - IN-STENT CORONARY ARTERY RESTENOSIS [None]
